FAERS Safety Report 23259025 (Version 1)
Quarter: 2023Q4

REPORT INFORMATION
  Report Type: Spontaneous
  Country: US (occurrence: US)
  Receive Date: 20231204
  Receipt Date: 20231204
  Transmission Date: 20240109
  Serious: No
  Sender: FDA-Public Use
  Company Number: US-HALOZYME THERAPEUTICS, INC.-2022-SPO-TX-0644

PATIENT

DRUGS (2)
  1. XYOSTED [Suspect]
     Active Substance: TESTOSTERONE ENANTHATE
     Indication: Hypogonadism
     Dosage: 75 MG/0.5ML, QWK
     Route: 058
  2. XYOSTED [Suspect]
     Active Substance: TESTOSTERONE ENANTHATE
     Dosage: 75 MG/0.5ML, QWK
     Route: 058

REACTIONS (1)
  - Injection site haemorrhage [Unknown]
